FAERS Safety Report 13863343 (Version 1)
Quarter: 2017Q3

REPORT INFORMATION
  Report Type: Report from Study
  Country: DK (occurrence: DK)
  Receive Date: 20170814
  Receipt Date: 20170814
  Transmission Date: 20171127
  Serious: Yes (Other)
  Sender: FDA-Public Use
  Company Number: DK-ROCHE-1978185

PATIENT
  Age: 1 Year
  Sex: Male

DRUGS (1)
  1. SOMATROPIN. [Suspect]
     Active Substance: SOMATROPIN
     Indication: PRADER-WILLI SYNDROME
     Route: 065

REACTIONS (3)
  - Germ cell neoplasm [Unknown]
  - Off label use [Unknown]
  - Intentional product use issue [Unknown]
